FAERS Safety Report 8868619 (Version 1)
Quarter: 2012Q4

REPORT INFORMATION
  Report Type: Report from Study
  Country: US (occurrence: US)
  Receive Date: 20121024
  Receipt Date: 20121024
  Transmission Date: 20130627
  Serious: Yes (Other)
  Sender: FDA-Public Use
  Company Number: US-JNJFOC-20121009619

PATIENT
  Age: 28 Year

DRUGS (9)
  1. REMICADE [Suspect]
     Indication: PRODUCT USED FOR UNKNOWN INDICATION
     Route: 042
     Dates: start: 2012, end: 2012
  2. BUSPIRONE [Concomitant]
     Indication: ANXIETY
  3. MULTIVITAMINS [Concomitant]
  4. VITAMIN D [Concomitant]
  5. VITAMIN C [Concomitant]
  6. IRON SUPPLEMENT [Concomitant]
  7. OXYCONTIN [Concomitant]
     Indication: PAIN
  8. OXYCODONE [Concomitant]
     Indication: PAIN
  9. PREDNISONE [Concomitant]
     Dates: end: 201210

REACTIONS (6)
  - Surgery [Unknown]
  - Onychoclasis [Unknown]
  - Asthenia [Unknown]
  - Nausea [Unknown]
  - Alopecia [Unknown]
  - Decreased appetite [Unknown]
